FAERS Safety Report 8816705 (Version 1)
Quarter: 2012Q4

REPORT INFORMATION
  Report Type: Spontaneous
  Country: US (occurrence: None)
  Receive Date: 20120928
  Receipt Date: 20120928
  Transmission Date: 20130627
  Serious: Yes (Hospitalization)
  Sender: FDA-Public Use
  Company Number: 20120590

PATIENT
  Age: 53 Year
  Sex: Female

DRUGS (3)
  1. HYDROXYZINE HCL [Suspect]
     Indication: URTICARIA
  2. PAROXETINE [Suspect]
     Indication: DRUG USE FOR UNKNOWN INDICATION
  3. HYDROCODONE [Suspect]

REACTIONS (10)
  - Mental status changes [None]
  - Asthenia [None]
  - Somnolence [None]
  - Confusional state [None]
  - Muscular weakness [None]
  - Dizziness [None]
  - Drug screen positive [None]
  - Inhibitory drug interaction [None]
  - Overdose [None]
  - Dysstasia [None]
